FAERS Safety Report 15130644 (Version 1)
Quarter: 2018Q3

REPORT INFORMATION
  Report Type: Spontaneous
  Country: CZ (occurrence: CZ)
  Receive Date: 20180711
  Receipt Date: 20180711
  Transmission Date: 20181010
  Serious: Yes (Life-Threatening, Hospitalization)
  Sender: FDA-Public Use
  Company Number: CZ-PFIZER INC-2018276969

PATIENT
  Age: 65 Year
  Sex: Female
  Weight: 69 kg

DRUGS (8)
  1. TARGIN [Concomitant]
     Active Substance: NALOXONE HYDROCHLORIDE\OXYCODONE HYDROCHLORIDE
     Dosage: 20MG/10MG TBL, 1?0?1, ONE ON THE MORNING, ONE OF THE EVENING
     Route: 048
  2. RANITIDINE. [Concomitant]
     Active Substance: RANITIDINE
     Dosage: 50MG/2 ML, GIVEN AS PRE?MEDICATION BEFORE ADMINISTRATION OF TORISEL
     Route: 042
  3. TORISEL [Suspect]
     Active Substance: TEMSIROLIMUS
     Indication: NEOPLASM MALIGNANT
     Dosage: 1X WEEKLY, 3RD DOSE
     Route: 041
     Dates: start: 20180516, end: 20180601
  4. CALCICHEW D3 [Concomitant]
     Active Substance: CALCIUM\CHOLECALCIFEROL
     Dosage: 500MG/400 IU, 0?0?1 EVERY OTHER DAY, ON ON THE EVENING
     Route: 048
  5. DEXAMED [Concomitant]
     Indication: PREMEDICATION
     Dosage: 8 MG, UNK
     Route: 041
  6. DITHIADEN [Concomitant]
     Active Substance: BISULEPIN
     Dosage: 1 AMP, GIVEN AS PRE?MEDICATION BEFORE ADMINISTRATION OF TORISEL
     Route: 042
  7. ORCAL NEO [Concomitant]
     Dosage: 5MG TBL 1/2?0?0, HALF TABLET MORNING
     Route: 048
  8. DEGAN [Concomitant]
     Active Substance: METOCLOPRAMIDE HYDROCHLORIDE
     Indication: NAUSEA
     Dosage: 1?1?1 (ONE TABLET MORNING, ONE TABLET  NOON, ONE TABLET EVENING) TO BE TAKEN WHEN FEELING DIZZY
     Route: 048

REACTIONS (4)
  - Hypertensive crisis [Recovered/Resolved]
  - Hypersensitivity [Recovered/Resolved]
  - Loss of consciousness [Recovered/Resolved]
  - Cardiovascular disorder [Recovered/Resolved]

NARRATIVE: CASE EVENT DATE: 20180601
